FAERS Safety Report 9148516 (Version 7)
Quarter: 2015Q4

REPORT INFORMATION
  Report Type: Report from Study
  Country: JP (occurrence: JP)
  Receive Date: 20130308
  Receipt Date: 20151216
  Transmission Date: 20160305
  Serious: Yes (Life-Threatening, Hospitalization, Disabling, Other)
  Sender: FDA-Public Use
  Company Number: JP-009507513-2007SP022317

PATIENT
  Age: 35 Year
  Sex: Female
  Weight: 43 kg

DRUGS (19)
  1. TEMOZOLOMIDE. [Suspect]
     Active Substance: TEMOZOLOMIDE
     Dosage: 150 MG/M2, QD, CYCLE: 3-23 PERFORMED (5 DAYS ADMINISTRATION FOR EACH CYCLE)
     Route: 048
     Dates: start: 20070222, end: 20080929
  2. TEMOZOLOMIDE. [Suspect]
     Active Substance: TEMOZOLOMIDE
     Dosage: 150 MG/M2, QD
     Route: 048
     Dates: start: 20090105, end: 20090109
  3. TEMOZOLOMIDE. [Suspect]
     Active Substance: TEMOZOLOMIDE
     Dosage: 150 MG/M2, QD
     Route: 048
     Dates: start: 20090429, end: 20090503
  4. ALEVIATIN [Concomitant]
     Active Substance: PHENYTOIN SODIUM
     Indication: PROPHYLAXIS
     Dosage: DAILY DOSAGE UNKNOWN, START DATE OF ADMINISTRATION OF ALEVIATIN: BEFORE 04-OCT-2006; FORMULATION:POR
     Route: 048
     Dates: end: 20120909
  5. TEMOZOLOMIDE. [Suspect]
     Active Substance: TEMOZOLOMIDE
     Dosage: 150 MG/M2, QD
     Route: 048
     Dates: start: 20090722, end: 20090726
  6. GASTER [Concomitant]
     Active Substance: FAMOTIDINE
     Indication: PROPHYLAXIS
     Dosage: UNK
     Route: 048
     Dates: start: 20061221, end: 20061226
  7. TEMOZOLOMIDE. [Suspect]
     Active Substance: TEMOZOLOMIDE
     Dosage: 150 MG/M2, QD
     Route: 048
     Dates: start: 20081023, end: 20081027
  8. TEMOZOLOMIDE. [Suspect]
     Active Substance: TEMOZOLOMIDE
     Dosage: 150 MG/M2, QD
     Route: 048
     Dates: start: 20090401, end: 20090405
  9. FERROMIA [Concomitant]
     Active Substance: FERROUS CITRATE
     Indication: PROPHYLAXIS
     Dosage: DAILY DOSAGE UNKNOWN, FORMULATION: POR
     Route: 048
     Dates: start: 20061127, end: 20070126
  10. CEFAMEZIN [Concomitant]
     Active Substance: CEFAZOLIN
     Indication: PROPHYLAXIS
     Dosage: DAILY DOSAGE UNKNOWN
     Route: 041
     Dates: start: 20061216, end: 20061217
  11. TEMOZOLOMIDE. [Suspect]
     Active Substance: TEMOZOLOMIDE
     Dosage: 150 MG/M2, QD
     Route: 048
     Dates: start: 20090202, end: 20090206
  12. TEMOZOLOMIDE. [Suspect]
     Active Substance: TEMOZOLOMIDE
     Dosage: 150 MG/M2, QD
     Route: 048
     Dates: start: 20090624, end: 20090628
  13. PACLITAXEL. [Suspect]
     Active Substance: PACLITAXEL
     Indication: BREAST CANCER
     Dosage: DAILY DOSAGE UNKNOWN
     Route: 041
     Dates: start: 20130813, end: 20150609
  14. TEMOZOLOMIDE. [Suspect]
     Active Substance: TEMOZOLOMIDE
     Dosage: 150 MG/M2, QD
     Route: 048
     Dates: start: 20090819, end: 20090823
  15. AVASTIN [Suspect]
     Active Substance: BEVACIZUMAB
     Indication: BREAST CANCER
     Dosage: DAILY DOSE UNKNOWN
     Route: 041
     Dates: start: 20130813, end: 20150609
  16. TEMOZOLOMIDE. [Suspect]
     Active Substance: TEMOZOLOMIDE
     Indication: ANAPLASTIC ASTROCYTOMA
     Dosage: 150 MG/M2, QD
     Route: 048
     Dates: start: 20061009, end: 20061013
  17. TEMOZOLOMIDE. [Suspect]
     Active Substance: TEMOZOLOMIDE
     Dosage: 150 MG/M2, QD
     Route: 048
     Dates: start: 20090527, end: 20090531
  18. TEMOZOLOMIDE. [Suspect]
     Active Substance: TEMOZOLOMIDE
     Dosage: 150 MG/M2, QD
     Route: 048
     Dates: start: 20061109, end: 20061113
  19. TEMOZOLOMIDE. [Suspect]
     Active Substance: TEMOZOLOMIDE
     Dosage: 150 MG/M2, QD
     Route: 048
     Dates: start: 20090304, end: 20090308

REACTIONS (27)
  - Breast cancer [Not Recovered/Not Resolved]
  - Basophil count decreased [Recovered/Resolved]
  - C-reactive protein increased [Recovered/Resolved]
  - Hypoproteinaemia [Recovered/Resolved]
  - Malaise [Recovered/Resolved]
  - Vomiting [Recovered/Resolved]
  - Epilepsy [Recovered/Resolved]
  - Protein total decreased [Recovered/Resolved]
  - Lymphocyte count decreased [Recovered/Resolved]
  - Radiation necrosis [Recovered/Resolved with Sequelae]
  - Pneumocephalus [Recovered/Resolved]
  - Purulence [Recovered/Resolved]
  - Pneumocephalus [Recovered/Resolved]
  - Eosinophil count decreased [Recovered/Resolved]
  - White blood cell count increased [Recovered/Resolved]
  - Red blood cell count decreased [Recovered/Resolved]
  - Haematocrit decreased [Recovered/Resolved]
  - Neutrophil count increased [Recovered/Resolved]
  - Haemoglobin decreased [Recovered/Resolved]
  - Lymphocyte count decreased [Recovered/Resolved]
  - Diarrhoea [Recovered/Resolved]
  - Brain oedema [Recovering/Resolving]
  - Hydrocephalus [Recovered/Resolved]
  - Hypercholesterolaemia [Recovered/Resolved]
  - Disease progression [Recovered/Resolved]
  - White blood cell count increased [Recovered/Resolved]
  - Gamma-glutamyltransferase increased [Recovered/Resolved]

NARRATIVE: CASE EVENT DATE: 20061009
